FAERS Safety Report 24940737 (Version 1)
Quarter: 2025Q1

REPORT INFORMATION
  Report Type: Report from Study
  Country: ZA (occurrence: ZA)
  Receive Date: 20250207
  Receipt Date: 20250207
  Transmission Date: 20250408
  Serious: Yes (Other)
  Sender: ABBVIE
  Company Number: ZA-ABBVIE-6122724

PATIENT
  Sex: Male

DRUGS (1)
  1. OZURDEX [Suspect]
     Active Substance: DEXAMETHASONE
     Indication: Cystoid macular oedema
     Route: 050
     Dates: start: 20240711, end: 20240711

REACTIONS (3)
  - Ureteric cancer [Unknown]
  - Neoplasm malignant [Unknown]
  - Oedema [Unknown]
